FAERS Safety Report 15864712 (Version 6)
Quarter: 2019Q4

REPORT INFORMATION
  Report Type: Report from Study
  Country: US (occurrence: US)
  Receive Date: 20190124
  Receipt Date: 20191204
  Transmission Date: 20200122
  Serious: Yes (Hospitalization, Other)
  Sender: FDA-Public Use
  Company Number: PHEH2019US003049

PATIENT
  Sex: Male

DRUGS (2)
  1. SANDOSTATIN LAR DEPOT [Suspect]
     Active Substance: OCTREOTIDE ACETATE
     Indication: PRODUCT USED FOR UNKNOWN INDICATION
     Dosage: UNK
     Route: 065
  2. GILENYA [Suspect]
     Active Substance: FINGOLIMOD HYDROCHLORIDE
     Indication: PRODUCT USED FOR UNKNOWN INDICATION
     Dosage: UNK
     Route: 065

REACTIONS (14)
  - Staphylococcal infection [Unknown]
  - Osteomyelitis [Unknown]
  - Malignant neoplasm progression [Unknown]
  - Pyrexia [Unknown]
  - Back pain [Unknown]
  - Pain [Unknown]
  - Arthritis bacterial [Unknown]
  - Drug ineffective [Unknown]
  - Metastases to kidney [Unknown]
  - Muscle rupture [Unknown]
  - Product administered at inappropriate site [Unknown]
  - Malaise [Unknown]
  - Metastases to gallbladder [Unknown]
  - Wrong technique in product usage process [Unknown]
